FAERS Safety Report 24466104 (Version 1)
Quarter: 2024Q4

REPORT INFORMATION
  Report Type: Report from Study
  Country: US (occurrence: US)
  Receive Date: 20241018
  Receipt Date: 20241018
  Transmission Date: 20250115
  Serious: No
  Sender: ROCHE
  Company Number: US-ROCHE-3538626

PATIENT

DRUGS (1)
  1. XOLAIR [Suspect]
     Active Substance: OMALIZUMAB
     Indication: Urticaria
     Route: 065

REACTIONS (7)
  - Urticaria [Unknown]
  - Lip swelling [Unknown]
  - Eye swelling [Unknown]
  - Poor quality sleep [Unknown]
  - Burning sensation [Unknown]
  - Pruritus [Unknown]
  - Illness [Unknown]
